FAERS Safety Report 20623222 (Version 1)
Quarter: 2022Q1

REPORT INFORMATION
  Report Type: Spontaneous
  Country: US (occurrence: None)
  Receive Date: 20220322
  Receipt Date: 20220322
  Transmission Date: 20220423
  Serious: Yes (Other)
  Sender: FDA-Public Use
  Company Number: None

PATIENT
  Age: 93 Year
  Sex: Male

DRUGS (7)
  1. BRINZOLAMIDE [Suspect]
     Active Substance: BRINZOLAMIDE
     Indication: Glaucoma
     Dosage: OTHER FREQUENCY : ONCE IN EVENING;?
     Route: 031
     Dates: start: 202111
  2. BRIMONIDINE [Suspect]
     Active Substance: BRIMONIDINE TARTRATE
     Indication: Product used for unknown indication
  3. RHOPRESSA [Concomitant]
     Active Substance: NETARSUDIL MESYLATE
  4. LATANOPROST [Concomitant]
     Active Substance: LATANOPROST
  5. NIFEDIPINE [Concomitant]
     Active Substance: NIFEDIPINE
  6. TAMSULOSIN [Concomitant]
     Active Substance: TAMSULOSIN
  7. Over 50 vitamin D [Concomitant]

REACTIONS (7)
  - Product substitution issue [None]
  - Therapeutic response changed [None]
  - Hypersensitivity [None]
  - Eye pruritus [None]
  - Eye irritation [None]
  - Ocular hyperaemia [None]
  - Lacrimation increased [None]

NARRATIVE: CASE EVENT DATE: 20211101
